FAERS Safety Report 22526828 (Version 2)
Quarter: 2023Q2

REPORT INFORMATION
  Report Type: Spontaneous
  Country: LT (occurrence: LT)
  Receive Date: 20230606
  Receipt Date: 20230621
  Transmission Date: 20230721
  Serious: Yes (Other)
  Sender: FDA-Public Use
  Company Number: LT-BAYER-2023A074379

PATIENT
  Age: 65 Year
  Sex: Male

DRUGS (12)
  1. STIVARGA [Suspect]
     Active Substance: REGORAFENIB
     Indication: Adenocarcinoma
     Dosage: 160 MG, QD
     Dates: start: 20201104
  2. STIVARGA [Suspect]
     Active Substance: REGORAFENIB
     Indication: Adenocarcinoma
     Dosage: UNK
  3. STIVARGA [Suspect]
     Active Substance: REGORAFENIB
     Indication: Adenocarcinoma
     Dosage: UNK
  4. STIVARGA [Suspect]
     Active Substance: REGORAFENIB
     Indication: Adenocarcinoma
     Dosage: UNK
  5. STIVARGA [Suspect]
     Active Substance: REGORAFENIB
     Indication: Adenocarcinoma
     Dosage: UNK
  6. STIVARGA [Suspect]
     Active Substance: REGORAFENIB
     Indication: Adenocarcinoma
     Dosage: UNK
  7. STIVARGA [Suspect]
     Active Substance: REGORAFENIB
     Indication: Adenocarcinoma
     Dosage: UNK
  8. STIVARGA [Suspect]
     Active Substance: REGORAFENIB
     Indication: Adenocarcinoma
     Dosage: UNK
  9. STIVARGA [Suspect]
     Active Substance: REGORAFENIB
     Indication: Adenocarcinoma
     Dosage: UNK
  10. STIVARGA [Suspect]
     Active Substance: REGORAFENIB
     Indication: Adenocarcinoma
     Dosage: UNK
  11. STIVARGA [Suspect]
     Active Substance: REGORAFENIB
     Indication: Adenocarcinoma
     Dosage: UNK
  12. STIVARGA [Suspect]
     Active Substance: REGORAFENIB
     Indication: Adenocarcinoma
     Dosage: 120 MG, QD
     Dates: end: 202109

REACTIONS (5)
  - Metastases to liver [None]
  - Metastases to lung [None]
  - Palmar-plantar erythrodysaesthesia syndrome [Recovering/Resolving]
  - Gait disturbance [None]
  - Off label use [None]

NARRATIVE: CASE EVENT DATE: 20201104
